APPROVED DRUG PRODUCT: ZILEUTON
Active Ingredient: ZILEUTON
Strength: 600MG
Dosage Form/Route: TABLET, EXTENDED RELEASE;ORAL
Application: A211390 | Product #001 | TE Code: AB
Applicant: AIZANT DRUG RESEARCH SOLUTIONS PRIVATE LTD
Approved: Oct 23, 2020 | RLD: No | RS: No | Type: RX